FAERS Safety Report 9513350 (Version 2)
Quarter: 2013Q3

REPORT INFORMATION
  Report Type: Report from Study
  Country: US (occurrence: US)
  Receive Date: 20130910
  Receipt Date: 20130920
  Transmission Date: 20140515
  Serious: Yes (Hospitalization)
  Sender: FDA-Public Use
  Company Number: US-JNJFOC-20130904412

PATIENT
  Age: 16 Year
  Sex: Female
  Weight: 53.8 kg

DRUGS (8)
  1. REMICADE [Suspect]
     Indication: CROHN^S DISEASE
     Route: 042
     Dates: start: 20130823
  2. REMICADE [Suspect]
     Indication: CROHN^S DISEASE
     Route: 042
     Dates: start: 20130515
  3. IRON [Concomitant]
     Route: 065
  4. IBUPROFEN [Concomitant]
     Route: 065
  5. CLARITYNE-D [Concomitant]
     Route: 065
  6. MULTIVITAMINS [Concomitant]
     Route: 065
  7. PRILOSEC [Concomitant]
     Route: 065
  8. PHENERGAN [Concomitant]
     Route: 065

REACTIONS (1)
  - Dysmenorrhoea [Recovered/Resolved]
